FAERS Safety Report 8309687-4 (Version None)
Quarter: 2012Q2

REPORT INFORMATION
  Report Type: 
  Country: None (occurrence: None)
  Receive Date: 20120423
  Receipt Date: 20120409
  Transmission Date: 20120825
  Serious: Yes (Other)
  Sender: FDA-Public Use
  Company Number: 2012MA004743

PATIENT
  Age: 78 Year
  Sex: Male

DRUGS (1)
  1. CARBIDOPA AND LEVODOPA [Suspect]
     Indication: PARKINSON'S DISEASE
     Dosage: 600 MG;QD

REACTIONS (4)
  - DYSKINESIA [None]
  - TACHYPNOEA [None]
  - RESPIRATORY DISORDER [None]
  - CEREBRAL ISCHAEMIA [None]
